FAERS Safety Report 15302536 (Version 1)
Quarter: 2018Q4

REPORT INFORMATION
  Report Type: Spontaneous
  Country: DE (occurrence: DE)
  Receive Date: 20180821
  Receipt Date: 20180821
  Transmission Date: 20190204
  Serious: Yes (Hospitalization, Other)
  Sender: FDA-Public Use
  Company Number: DE-TEVA-2018-DE-945539

PATIENT
  Age: 53 Year
  Sex: Female

DRUGS (10)
  1. DOMINAL (PROTHIPENDYL HYDROCHLORIDE) [Suspect]
     Active Substance: PROTHIPENDYL HYDROCHLORIDE
     Dosage: 80 MILLIGRAM DAILY;
     Route: 048
     Dates: start: 20180208, end: 20180215
  2. VENLAFAXIN [Suspect]
     Active Substance: VENLAFAXINE HYDROCHLORIDE
     Dosage: 300 MILLIGRAM DAILY;
     Route: 048
     Dates: start: 20180217
  3. L-THYROXIN [Concomitant]
     Active Substance: LEVOTHYROXINE SODIUM
     Dosage: 50 MICROGRAM DAILY; TAKING FOR YEARS
     Route: 048
  4. VENLAFAXIN [Suspect]
     Active Substance: VENLAFAXINE HYDROCHLORIDE
     Dosage: EINNAHME SEIT JAHREN
     Route: 048
     Dates: end: 20180216
  5. LERCANIDIPIN [Concomitant]
     Active Substance: LERCANIDIPINE
     Dosage: 10 MILLIGRAM DAILY; TAKING FOR YEARS
     Route: 048
  6. PROMETHAZINE [Suspect]
     Active Substance: PROMETHAZINE\PROMETHAZINE HYDROCHLORIDE
     Dosage: 50 MILLIGRAM DAILY; UNIQUE GIFT
     Route: 048
     Dates: start: 20180215, end: 20180215
  7. CHLORALDURAT [Suspect]
     Active Substance: CHLORAL HYDRATE
     Dosage: 500 MILLIGRAM DAILY;
     Route: 048
  8. CIRCADIN [Concomitant]
     Active Substance: MELATONIN
     Dosage: 2 MILLIGRAM DAILY;
     Route: 048
     Dates: start: 20180208, end: 20180228
  9. TORASEMID [Concomitant]
     Active Substance: TORSEMIDE
     Dosage: 5 MILLIGRAM DAILY; TAKING FOR YEARS
     Route: 048
  10. RESTEX [Suspect]
     Active Substance: BENSERAZIDE\LEVODOPA
     Dosage: 100 MILLIGRAM DAILY; TAKING FOR 2 YEARS
     Route: 048

REACTIONS (5)
  - Disturbance in attention [Recovered/Resolved]
  - Restlessness [Recovered/Resolved]
  - Delirium [Recovered/Resolved]
  - Helplessness [Recovered/Resolved]
  - Disorientation [Recovered/Resolved]

NARRATIVE: CASE EVENT DATE: 20180215
